FAERS Safety Report 5868369-9 (Version None)
Quarter: 2008Q3

REPORT INFORMATION
  Report Type: 
  Country: None (occurrence: None)
  Receive Date: 20080902
  Receipt Date: 20080902
  Transmission Date: 20090109
  Serious: Yes (Hospitalization, Disabling)
  Sender: FDA-Public Use
  Company Number: None

PATIENT
  Age: 67 Year
  Sex: Male
  Weight: 83.9154 kg

DRUGS (2)
  1. TRIAMTERENE [Suspect]
  2. LISINOPRIL [Concomitant]

REACTIONS (5)
  - CONTRAINDICATION TO MEDICAL TREATMENT [None]
  - EMOTIONAL DISORDER [None]
  - FEAR [None]
  - PAIN [None]
  - PANCREATITIS ACUTE [None]
